FAERS Safety Report 8895836 (Version 2)
Quarter: 2013Q1

REPORT INFORMATION
  Report Type: Spontaneous
  Country: CA (occurrence: CA)
  Receive Date: 20121108
  Receipt Date: 20130321
  Transmission Date: 20140127
  Serious: Yes (Other)
  Sender: FDA-Public Use
  Company Number: CA-JNJFOC-20121102760

PATIENT
  Sex: Female
  Weight: 54.43 kg

DRUGS (5)
  1. NICORETTE 2 MG [Suspect]
     Indication: SMOKING CESSATION THERAPY
     Route: 048
  2. NICORETTE 2 MG [Suspect]
     Indication: SMOKING CESSATION THERAPY
     Route: 048
  3. DILAUDID [Concomitant]
     Indication: PAIN
     Route: 065
  4. UNIPHYL [Concomitant]
     Indication: CHRONIC OBSTRUCTIVE PULMONARY DISEASE
     Route: 065
  5. VITAMIN [Concomitant]
     Route: 065

REACTIONS (2)
  - Tobacco poisoning [Unknown]
  - Ventricular extrasystoles [Recovered/Resolved]
